FAERS Safety Report 12376123 (Version 2)
Quarter: 2016Q3

REPORT INFORMATION
  Report Type: Spontaneous
  Country: US (occurrence: US)
  Receive Date: 20160517
  Receipt Date: 20160901
  Transmission Date: 20161109
  Serious: No
  Sender: FDA-Public Use
  Company Number: US-RELYPSA-RLY2016000099

PATIENT
  Sex: Male

DRUGS (12)
  1. CARTEOLOL HCL [Concomitant]
     Active Substance: CARTEOLOL HYDROCHLORIDE
  2. TAMSULOSIN HCL [Concomitant]
     Active Substance: TAMSULOSIN
  3. VELTASSA [Suspect]
     Active Substance: PATIROMER
     Indication: HYPERKALAEMIA
     Dosage: 8.4 GM, QD
     Route: 048
     Dates: start: 20160203
  4. MULTIVITAMINS [Concomitant]
     Active Substance: VITAMINS
  5. AMLODIPINE BESYLATE. [Concomitant]
     Active Substance: AMLODIPINE BESYLATE
  6. VITAMIN C [Concomitant]
     Active Substance: ASCORBIC ACID
  7. VITAMIN D                          /00107901/ [Concomitant]
     Active Substance: ERGOCALCIFEROL
  8. FINASTERIDE. [Concomitant]
     Active Substance: FINASTERIDE
  9. ATORVASTATIN CALCIUM. [Concomitant]
     Active Substance: ATORVASTATIN CALCIUM
  10. CLOPIDOGREL BISULFATE. [Concomitant]
     Active Substance: CLOPIDOGREL BISULFATE
  11. FAMOTIDINE. [Concomitant]
     Active Substance: FAMOTIDINE
  12. FUROSEMIDE. [Concomitant]
     Active Substance: FUROSEMIDE

REACTIONS (1)
  - Constipation [Recovered/Resolved]
